FAERS Safety Report 8240579-5 (Version None)
Quarter: 2012Q1

REPORT INFORMATION
  Report Type: 
  Country: None (occurrence: None)
  Receive Date: 20120328
  Receipt Date: 20120314
  Transmission Date: 20120608
  Serious: Yes (Other)
  Sender: FDA-Public Use
  Company Number: JP-ROCHE-1050885

PATIENT
  Age: 55 Year
  Sex: Male

DRUGS (12)
  1. OXALIPLATIN [Concomitant]
     Indication: LARGE INTESTINE CARCINOMA
     Dosage: DOSAGE IS UNCERTAIN. FOLFOX REGIMEN
     Route: 041
  2. TS-1 [Suspect]
     Indication: LARGE INTESTINE CARCINOMA
     Dosage: IT IS ONE ADMINISTERING WEEKLY HOLIDAY MEDICINE FOR UNCERTAIN DOSAGE AND TWO WEEKS.
     Route: 048
     Dates: start: 20111001
  3. FLUOROURACIL [Concomitant]
     Dosage: DOSAGE IS UNCERTAIN. FOLFIRI REGIMEN
     Route: 040
  4. AVASTIN [Suspect]
     Route: 041
     Dates: start: 20111003
  5. FLUOROURACIL [Concomitant]
     Indication: LARGE INTESTINE CARCINOMA
     Dosage: DOSAGE IS UNCERTAIN. FOLFOX REGIMEN
     Route: 040
  6. FLUOROURACIL [Concomitant]
     Dosage: DOSAGE IS UNCERTAIN. FOLFIRI REGIMEN
     Route: 041
  7. LEVOFOLINATE [Concomitant]
     Indication: LARGE INTESTINE CARCINOMA
     Dosage: DOSAGE IS UNCERTAIN. FOLFOX REGIMEN
     Route: 041
  8. FLUOROURACIL [Concomitant]
     Dosage: DOSAGE IS UNCERTAIN. FOLFOX REGIMEN
     Route: 041
  9. XELODA [Suspect]
     Indication: LARGE INTESTINE CARCINOMA
     Dosage: DOSAGE IS UNCERTAIN.
     Route: 048
  10. AVASTIN [Suspect]
     Indication: LARGE INTESTINE CARCINOMA
     Dosage: DOSAGE IS UNCERTAIN.
     Route: 041
     Dates: end: 20110801
  11. IRINOTECAN HCL [Concomitant]
     Indication: LARGE INTESTINE CARCINOMA
     Dosage: DOSAGE IS UNCERTAIN. FOLFIRI REGIMEN
     Route: 041
  12. LEVOFOLINATE [Concomitant]
     Dosage: DOSAGE IS UNCERTAIN. FOLFIRI REGIMEN
     Route: 041

REACTIONS (6)
  - ASPARTATE AMINOTRANSFERASE INCREASED [None]
  - JAUNDICE [None]
  - SPLENOMEGALY [None]
  - PLATELET COUNT DECREASED [None]
  - BLOOD ALKALINE PHOSPHATASE INCREASED [None]
  - ALANINE AMINOTRANSFERASE INCREASED [None]
